FAERS Safety Report 23573154 (Version 5)
Quarter: 2025Q3

REPORT INFORMATION
  Report Type: Spontaneous
  Country: US (occurrence: US)
  Receive Date: 20240227
  Receipt Date: 20250807
  Transmission Date: 20251021
  Serious: Yes (Disabling, Other)
  Sender: AMGEN
  Company Number: US-HORIZON THERAPEUTICS-HZN-2024-002371

PATIENT
  Age: 51 Year
  Sex: Female
  Weight: 104 kg

DRUGS (12)
  1. TEPEZZA [Suspect]
     Active Substance: TEPROTUMUMAB-TRBW
     Indication: Endocrine ophthalmopathy
     Route: 042
     Dates: start: 202102
  2. TEPEZZA [Suspect]
     Active Substance: TEPROTUMUMAB-TRBW
     Route: 042
     Dates: start: 202105
  3. TEPEZZA [Suspect]
     Active Substance: TEPROTUMUMAB-TRBW
     Route: 042
     Dates: start: 20211028
  4. TEPEZZA [Suspect]
     Active Substance: TEPROTUMUMAB-TRBW
     Route: 042
     Dates: start: 20211119
  5. TEPEZZA [Suspect]
     Active Substance: TEPROTUMUMAB-TRBW
     Route: 042
     Dates: start: 20220107
  6. TEPEZZA [Suspect]
     Active Substance: TEPROTUMUMAB-TRBW
     Route: 042
     Dates: start: 20220322, end: 20220322
  7. PREDNISONE [Suspect]
     Active Substance: PREDNISONE
     Indication: Product used for unknown indication
     Route: 065
  8. METFORMIN [Concomitant]
     Active Substance: METFORMIN HYDROCHLORIDE
     Route: 065
  9. NOVOLOG [Concomitant]
     Active Substance: INSULIN ASPART
     Route: 065
  10. TRULICITY [Concomitant]
     Active Substance: DULAGLUTIDE
     Route: 065
  11. LINAGLIPTIN [Concomitant]
     Active Substance: LINAGLIPTIN
     Route: 065
  12. Artificial tears [Concomitant]
     Route: 065

REACTIONS (25)
  - Deafness neurosensory [Not Recovered/Not Resolved]
  - Physical disability [Not Recovered/Not Resolved]
  - Disability [Not Recovered/Not Resolved]
  - Exophthalmos [Unknown]
  - Injury [Not Recovered/Not Resolved]
  - Pain [Not Recovered/Not Resolved]
  - Anxiety [Not Recovered/Not Resolved]
  - Discomfort [Not Recovered/Not Resolved]
  - Emotional distress [Not Recovered/Not Resolved]
  - Economic problem [Not Recovered/Not Resolved]
  - Impaired quality of life [Not Recovered/Not Resolved]
  - Concomitant disease aggravated [Not Recovered/Not Resolved]
  - Tinnitus [Not Recovered/Not Resolved]
  - Product quality issue [Unknown]
  - Periorbital swelling [Unknown]
  - Lacrimation increased [Unknown]
  - Paranasal sinus discomfort [Unknown]
  - Dry eye [Unknown]
  - Exposure keratitis [Unknown]
  - Eyelid oedema [Unknown]
  - Conjunctival oedema [Unknown]
  - Erythema [Unknown]
  - Chalazion [Unknown]
  - Hypoacusis [Unknown]
  - Headache [Unknown]

NARRATIVE: CASE EVENT DATE: 20220101
